FAERS Safety Report 8387336-7 (Version None)
Quarter: 2012Q2

REPORT INFORMATION
  Report Type: 
  Country: None (occurrence: None)
  Receive Date: 20120525
  Receipt Date: 20120521
  Transmission Date: 20120825
  Serious: Yes (Other)
  Sender: FDA-Public Use
  Company Number: US-ROCHE-1071918

PATIENT
  Sex: Male

DRUGS (7)
  1. RIBAVIRIN [Suspect]
     Indication: HEPATITIS C
     Dates: start: 20080523, end: 20081015
  2. RIBAVIRIN [Suspect]
     Dates: start: 20120525
  3. INCIVEK [Suspect]
     Indication: HEPATITIS C
     Dates: start: 20120525
  4. PEGASYS [Suspect]
     Dates: start: 20100525, end: 20111221
  5. RIBAVIRIN [Suspect]
     Dates: start: 20100525, end: 20111221
  6. PEGASYS [Suspect]
     Dates: start: 20120525
  7. PEGASYS [Suspect]
     Indication: HEPATITIS C
     Dates: start: 20080523, end: 20081015

REACTIONS (2)
  - TRANSFUSION [None]
  - NO THERAPEUTIC RESPONSE [None]
